FAERS Safety Report 7339057-7 (Version None)
Quarter: 2011Q1

REPORT INFORMATION
  Report Type: 
  Country: None (occurrence: None)
  Receive Date: 20110308
  Receipt Date: 20110223
  Transmission Date: 20110831
  Serious: Yes (Hospitalization)
  Sender: FDA-Public Use
  Company Number: FR-ELI_LILLY_AND_COMPANY-FR201102007462

PATIENT
  Sex: Male

DRUGS (6)
  1. CYMBALTA [Suspect]
     Dosage: UNK, UNKNOWN
  2. SINGULAIR [Concomitant]
     Indication: ASTHMA
     Dates: start: 19940101
  3. PULMICORT [Concomitant]
     Indication: ASTHMA
     Dates: start: 19940101
  4. VENLAFAXINE [Concomitant]
     Dosage: UNK, UNKNOWN
     Dates: start: 20090401, end: 20090501
  5. CYMBALTA [Suspect]
     Indication: DEPRESSION
     Dosage: 60 MG, DAILY (1/D)
     Route: 048
     Dates: start: 20080401, end: 20090410
  6. XOLAAM [Concomitant]
     Dosage: 3 D/F, DAILY (1/D)
     Route: 048
     Dates: start: 20080401, end: 20090410

REACTIONS (3)
  - TOXIC SKIN ERUPTION [None]
  - CONDITION AGGRAVATED [None]
  - PUSTULAR PSORIASIS [None]
